FAERS Safety Report 7909317-7 (Version None)
Quarter: 2011Q4

REPORT INFORMATION
  Report Type: 
  Country: None (occurrence: None)
  Receive Date: 20111111
  Receipt Date: 20111102
  Transmission Date: 20120403
  Serious: Yes (Hospitalization)
  Sender: FDA-Public Use
  Company Number: US-BAYER-2011-018963

PATIENT
  Age: 39 Year
  Sex: Female
  Weight: 67.6 kg

DRUGS (23)
  1. BUSPAR [Concomitant]
     Dosage: 30 MG, BID
     Route: 048
     Dates: start: 20100405, end: 20100608
  2. DIFLUCAN [Concomitant]
     Dosage: 15 MG, QD
     Route: 048
     Dates: start: 20100430, end: 20100730
  3. TRIAMCINOLONE ACETONIDE [Concomitant]
     Route: 061
  4. SERTRALINE HYDROCHLORIDE [Concomitant]
     Dosage: 100 MG, QD
     Route: 048
  5. PROAIR HFA [Concomitant]
     Route: 055
  6. GLUCOTROL [Concomitant]
     Dosage: 10 MG
     Route: 048
     Dates: start: 20100430, end: 20110503
  7. GLUCOPHAGE [Concomitant]
     Dosage: 1000 MG, BID
     Route: 048
  8. LORATADINE [Concomitant]
     Route: 048
  9. VITAMIN D [Concomitant]
     Dosage: 1000 U, QD
     Route: 048
     Dates: start: 20100505, end: 20110604
  10. INSULIN [INSULIN] [Concomitant]
  11. YAZ [Suspect]
     Indication: MENSTRUATION IRREGULAR
  12. GLIPIZIDE [Concomitant]
     Route: 048
  13. QVAR 40 [Concomitant]
     Dosage: 0.04 MG, BID
     Route: 055
     Dates: start: 20100405, end: 20110405
  14. METFORMIN HCL [Concomitant]
     Dosage: 1000 MG, BID
     Route: 048
     Dates: start: 20091120, end: 20101120
  15. ASPIRIN [Concomitant]
     Dosage: 81 MG, DAILY
     Route: 048
     Dates: start: 20090610, end: 20100711
  16. ZOLOFT [Concomitant]
     Dosage: 50 MG, TWO A DAY
     Route: 048
     Dates: start: 20100113, end: 20110113
  17. HERBALS NOS W/VITAMINS NOS [Concomitant]
  18. FLUCONAZOLE [Concomitant]
  19. DESYREL [Concomitant]
     Dosage: 100 MG, UNK
     Route: 048
     Dates: start: 20100214, end: 20101114
  20. PROVENTIL-HFA [Concomitant]
     Dosage: 0.09 MG, INHALE TWO TIME BY MOUTH FOUR TIME PER DAY PRN
     Dates: start: 20100223, end: 20110223
  21. MONISTAT [Concomitant]
     Dosage: 4 %, UNK
     Route: 061
     Dates: start: 20100430, end: 20100630
  22. YAZ [Suspect]
     Indication: CONTRACEPTION
     Dosage: UNK
     Route: 048
     Dates: start: 20090601, end: 20091001
  23. VITAMIN D, VITAMIN E, SAFFLOWER OIL [Concomitant]
     Route: 061

REACTIONS (2)
  - DEEP VEIN THROMBOSIS [None]
  - PULMONARY EMBOLISM [None]
